FAERS Safety Report 5499159-7 (Version None)
Quarter: 2007Q4

REPORT INFORMATION
  Report Type: 
  Country: None (occurrence: None)
  Receive Date: 20071026
  Receipt Date: 20071024
  Transmission Date: 20080405
  Serious: Yes (Hospitalization)
  Sender: FDA-Public Use
  Company Number: DE-BAYER-200610305BVD

PATIENT
  Age: 69 Year
  Sex: Female

DRUGS (5)
  1. SORAFENIB [Suspect]
     Indication: RENAL CELL CARCINOMA STAGE UNSPECIFIED
     Dosage: TOTAL DAILY DOSE: 800 MG
     Route: 048
     Dates: start: 20060217, end: 20060227
  2. SORAFENIB [Suspect]
     Route: 048
  3. NEBILET [Concomitant]
     Route: 065
     Dates: start: 19860101
  4. CLIONARA [Concomitant]
     Route: 065
     Dates: start: 19780101
  5. LEVOTHYROXINE SODIUM [Concomitant]
     Route: 065
     Dates: start: 20030101

REACTIONS (3)
  - DISORIENTATION [None]
  - LACUNAR INFARCTION [None]
  - SPEECH DISORDER [None]
